FAERS Safety Report 5148563-5 (Version None)
Quarter: 2006Q4

REPORT INFORMATION
  Report Type: 
  Country: None (occurrence: None)
  Receive Date: 20061107
  Receipt Date: 20061013
  Transmission Date: 20070319
  Serious: Yes (Hospitalization)
  Sender: FDA-Public Use
  Company Number: 23100352

PATIENT
  Age: 78 Year
  Sex: Male

DRUGS (1)
  1. ARGATROBAN [Suspect]
     Indication: CORONARY ARTERY BYPASS

REACTIONS (2)
  - HAEMORRHAGE [None]
  - PRESCRIBED OVERDOSE [None]
